FAERS Safety Report 18385588 (Version 1)
Quarter: 2020Q4

REPORT INFORMATION
  Report Type: Spontaneous
  Country: US (occurrence: US)
  Receive Date: 20201015
  Receipt Date: 20201015
  Transmission Date: 20210114
  Serious: No
  Sender: FDA-Public Use
  Company Number: US-BEH-2020123364

PATIENT
  Sex: Female

DRUGS (1)
  1. HIZENTRA [Suspect]
     Active Substance: HUMAN IMMUNOGLOBULIN G
     Indication: MYASTHENIA GRAVIS
     Dosage: 22 GRAM, QW
     Route: 058
     Dates: start: 201812

REACTIONS (4)
  - Nasal congestion [Unknown]
  - Product use in unapproved indication [Unknown]
  - Inflammation [Unknown]
  - No adverse event [Unknown]

NARRATIVE: CASE EVENT DATE: 2019
